FAERS Safety Report 7939378-0 (Version None)
Quarter: 2011Q4

REPORT INFORMATION
  Report Type: 
  Country: None (occurrence: None)
  Receive Date: 20111125
  Receipt Date: 20111115
  Transmission Date: 20120403
  Serious: Yes (Disabling, Other)
  Sender: FDA-Public Use
  Company Number: US-BAYER-201037024NA

PATIENT
  Age: 29 Year
  Sex: Female
  Weight: 96.145 kg

DRUGS (9)
  1. PHENERGAN [Concomitant]
     Indication: NAUSEA
     Dosage: 25 MG, PRN
  2. YAZ [Suspect]
     Dosage: UNK UNK, UNK
     Route: 048
  3. YASMIN [Suspect]
     Dosage: UNK UNK, UNK
     Route: 048
  4. MERIDIA [Concomitant]
     Dosage: 15MG
  5. LEVOTHYROXINE SODIUM [Concomitant]
     Dosage: 175MCG
  6. PHENTERMINE [Concomitant]
     Dosage: 37,5MG
  7. VICODIN [Concomitant]
     Indication: PAIN
     Dosage: UNK UNK, QD
  8. IBUPROFEN (ADVIL) [Concomitant]
     Indication: HEADACHE
  9. VYTORIN [Concomitant]
     Dosage: 10-40MG

REACTIONS (6)
  - GLAUCOMA [None]
  - EYE DISORDER [None]
  - RETINAL DETACHMENT [None]
  - RETINAL VEIN OCCLUSION [None]
  - PAIN [None]
  - BLINDNESS UNILATERAL [None]
